FAERS Safety Report 5369251-6 (Version None)
Quarter: 2007Q2

REPORT INFORMATION
  Report Type: 
  Country: None (occurrence: None)
  Receive Date: 20070625
  Receipt Date: 20070322
  Transmission Date: 20071010
  Serious: Yes (Hospitalization)
  Sender: FDA-Public Use
  Company Number: US-ASTRAZENECA-2007UW04100

PATIENT
  Age: 64 Year
  Sex: Female

DRUGS (6)
  1. CRESTOR [Suspect]
     Route: 048
     Dates: end: 20070201
  2. TRICOR [Concomitant]
  3. COREG [Concomitant]
  4. NORVASC [Concomitant]
  5. THYROID TAB [Concomitant]
  6. DIURETIC [Concomitant]

REACTIONS (2)
  - RENAL FAILURE ACUTE [None]
  - RHABDOMYOLYSIS [None]
